FAERS Safety Report 19290771 (Version 3)
Quarter: 2021Q2

REPORT INFORMATION
  Report Type: Report from Study
  Country: None (occurrence: CO)
  Receive Date: 20210521
  Receipt Date: 20210630
  Transmission Date: 20210717
  Serious: Yes (Death, Hospitalization, Other)
  Sender: FDA-Public Use
  Company Number: CO-ABBVIE-21K-036-3917022-00

PATIENT
  Age: 66 Year
  Sex: Female
  Weight: 54 kg

DRUGS (2)
  1. ZEMPLAR [Suspect]
     Active Substance: PARICALCITOL
     Indication: CHRONIC KIDNEY DISEASE
  2. ZEMPLAR [Suspect]
     Active Substance: PARICALCITOL
     Indication: HYPERPARATHYROIDISM SECONDARY
     Route: 042
     Dates: start: 20200316, end: 20210412

REACTIONS (7)
  - Pulmonary thrombosis [Unknown]
  - Pneumonia [Recovering/Resolving]
  - COVID-19 [Not Recovered/Not Resolved]
  - Sitting disability [Unknown]
  - Cardiac arrest [Fatal]
  - Myocardial infarction [Fatal]
  - Speech disorder [Recovering/Resolving]

NARRATIVE: CASE EVENT DATE: 2021
